FAERS Safety Report 9417356 (Version 1)
Quarter: 2013Q3

REPORT INFORMATION
  Report Type: Spontaneous
  Country: TR (occurrence: TR)
  Receive Date: 20130724
  Receipt Date: 20130724
  Transmission Date: 20140515
  Serious: Yes (Hospitalization)
  Sender: FDA-Public Use
  Company Number: TR-TEVA-419681ISR

PATIENT
  Age: 71 Year
  Sex: Female

DRUGS (4)
  1. METHOTREXATE [Suspect]
     Indication: RHEUMATOID ARTHRITIS
     Dosage: 2.5 MG/DAY THREE DAYS A WEEK
     Route: 065
  2. METHOTREXATE [Suspect]
     Dosage: 2.5 MG/DAY FOUR DAYS A WEEK
     Route: 065
  3. DICLOFENAC [Concomitant]
     Indication: RHEUMATOID ARTHRITIS
     Route: 065
  4. CLOPIDOGREL [Concomitant]
     Indication: CEREBRAL ISCHAEMIA
     Route: 065

REACTIONS (6)
  - Pancytopenia [Recovered/Resolved]
  - Dysphagia [Unknown]
  - Asthenia [Unknown]
  - Diarrhoea [Unknown]
  - Dehydration [Unknown]
  - Stomatitis [Unknown]
